FAERS Safety Report 11515088 (Version 1)
Quarter: 2015Q3

REPORT INFORMATION
  Report Type: Spontaneous
  Country: US (occurrence: US)
  Receive Date: 20150916
  Receipt Date: 20150916
  Transmission Date: 20151125
  Serious: Yes (Life-Threatening)
  Sender: FDA-Public Use
  Company Number: US-MYLANLABS-2015M1029314

PATIENT
  Age: 79 Year
  Sex: Female
  Weight: 69.84 kg

DRUGS (2)
  1. CELECOXIB. [Suspect]
     Active Substance: CELECOXIB
     Indication: ARTHRITIS
     Dosage: 200 MG, ONCE
     Route: 048
     Dates: start: 20150821, end: 20150821
  2. LOSARTIN PLUS [Concomitant]
     Indication: BLOOD PRESSURE MEASUREMENT
     Dosage: 100 MG,/12.5MG. QD
     Route: 048

REACTIONS (2)
  - Pruritus [Recovered/Resolved]
  - Angioedema [Recovered/Resolved]

NARRATIVE: CASE EVENT DATE: 20150821
